FAERS Safety Report 8439054 (Version 2)
Quarter: 2013Q2

REPORT INFORMATION
  Report Type: Spontaneous
  Country: US (occurrence: None)
  Receive Date: 20120104
  Receipt Date: 20120508
  Transmission Date: 20140414
  Serious: No
  Sender: FDA-Public Use
  Company Number: 2011HGS-002635

PATIENT
  Age: 43 Year
  Sex: Female
  Weight: 92.99 kg

DRUGS (21)
  1. BENLYSTA [Suspect]
     Indication: SYSTEMIC LUPUS ERYTHEMATOSUS
     Dosage: 10 MG/KG, 1 IN 2 WK, INTRAVENOUS DRIP
     Route: 041
     Dates: start: 20111005
  2. PREDNISONE [Concomitant]
  3. PLAQUENIL [Concomitant]
  4. METHOTREXATE [Concomitant]
  5. SPIRONOLACTONE [Concomitant]
  6. XANAX [Concomitant]
  7. PILOCARPINE HYDROCHLORIDE [Concomitant]
  8. NEURONTIN [Concomitant]
  9. BIODENTICAL HORMONES (HORMONES AND RELATED AGENTS) [Concomitant]
  10. TRILEPTAL [Concomitant]
  11. NISEDIAC (NIFEDIPINE) [Concomitant]
  12. FOLIC ACID [Concomitant]
  13. VITAMIN D (ERGOCALCIFEROL) [Concomitant]
  14. PRENATAL VITAMIN (PRENATAL VITAMINS /01549301/) (ASCORBIC ACID, BIOTIN, TOCOPHEROL, NICOTINIC ACID, RETINOL, MINERALS NOS, VITAMIN B NOS, VITAMIN D NOS) [Concomitant]
  15. PREVACID (LANSOPRAZOLE) [Concomitant]
  16. B12 (CYANOCOBALAMIN) [Concomitant]
  17. LUNESTA (ESZOPICLONE) [Concomitant]
  18. OMNARIS (CICLESONIDE) [Concomitant]
  19. KLONOPIN (CLONAZEPAM) [Concomitant]
  20. VALTREX (VALACICLOVIR HYDROCHLORIDE) [Concomitant]
  21. RANITIDINE [Concomitant]

REACTIONS (5)
  - NAUSEA [None]
  - HEADACHE [None]
  - DIARRHOEA [None]
  - Palpitations [None]
  - Fatigue [None]
